FAERS Safety Report 21163403 (Version 1)
Quarter: 2022Q3

REPORT INFORMATION
  Report Type: Spontaneous
  Country: CN (occurrence: CN)
  Receive Date: 20220802
  Receipt Date: 20220802
  Transmission Date: 20221027
  Serious: Yes (Disabling)
  Sender: FDA-Public Use
  Company Number: CN-009507513-2207CHN009058

PATIENT
  Sex: Female
  Weight: 57.5 kg

DRUGS (1)
  1. CILASTATIN SODIUM\IMIPENEM [Suspect]
     Active Substance: CILASTATIN SODIUM\IMIPENEM
     Indication: Antibiotic therapy
     Dosage: 0.5G, Q8H
     Route: 041
     Dates: start: 20220710, end: 20220711

REACTIONS (8)
  - Mania [Recovering/Resolving]
  - Chills [Recovering/Resolving]
  - Hypersensitivity [Recovering/Resolving]
  - Tremor [Recovering/Resolving]
  - Temperature intolerance [Unknown]
  - Pulse abnormal [Unknown]
  - Blood pressure abnormal [Unknown]
  - Oxygen saturation abnormal [Unknown]

NARRATIVE: CASE EVENT DATE: 20220711
